FAERS Safety Report 20902641 (Version 15)
Quarter: 2025Q1

REPORT INFORMATION
  Report Type: Report from Study
  Country: US (occurrence: US)
  Receive Date: 20220601
  Receipt Date: 20250227
  Transmission Date: 20250408
  Serious: Yes (Other)
  Sender: TAKEDA
  Company Number: US-TAKEDA-2022TUS034920

PATIENT
  Sex: Female
  Weight: 79 kg

DRUGS (32)
  1. HUMAN IMMUNOGLOBULIN G [Suspect]
     Active Substance: HUMAN IMMUNOGLOBULIN G
     Indication: Immunodeficiency
     Dosage: 8 GRAM, 1/WEEK
     Dates: start: 20220402
  2. ASMANEX HFA [Concomitant]
     Active Substance: MOMETASONE FUROATE
  3. EPINEPHRINE [Concomitant]
     Active Substance: EPINEPHRINE
  4. DYMISTA [Concomitant]
     Active Substance: AZELASTINE HYDROCHLORIDE\FLUTICASONE PROPIONATE
  5. DEXILANT [Concomitant]
     Active Substance: DEXLANSOPRAZOLE
  6. LEFLUNOMIDE [Concomitant]
     Active Substance: LEFLUNOMIDE
  7. CARAFATE [Concomitant]
     Active Substance: SUCRALFATE
  8. ZYRTEC [Concomitant]
     Active Substance: CETIRIZINE HYDROCHLORIDE
  9. POTASSIUM CHLORIDE [Concomitant]
     Active Substance: POTASSIUM CHLORIDE
  10. PREDNISONE [Concomitant]
     Active Substance: PREDNISONE
  11. SUDAFED [Concomitant]
     Active Substance: PSEUDOEPHEDRINE HYDROCHLORIDE
  12. ACETAMINOPHEN [Concomitant]
     Active Substance: ACETAMINOPHEN
  13. FAMOTIDINE [Concomitant]
     Active Substance: FAMOTIDINE
  14. HYDROCORTISONE [Concomitant]
     Active Substance: HYDROCORTISONE
  15. TYLENOL EXTRA STRENGTH [Concomitant]
     Active Substance: ACETAMINOPHEN
  16. FERROUS SULFATE [Concomitant]
     Active Substance: FERROUS SULFATE
  17. INCRUSE ELLIPTA [Concomitant]
     Active Substance: UMECLIDINIUM BROMIDE
  18. VITAMIN C [Concomitant]
     Active Substance: ASCORBIC ACID
  19. MONTELUKAST SODIUM [Concomitant]
     Active Substance: MONTELUKAST SODIUM
  20. NUCALA [Concomitant]
     Active Substance: MEPOLIZUMAB
  21. MUCINEX [Concomitant]
     Active Substance: GUAIFENESIN
  22. PULMICORT TURBUHALER [Concomitant]
     Active Substance: BUDESONIDE
  23. Lmx [Concomitant]
  24. ADVAIR HFA [Concomitant]
     Active Substance: FLUTICASONE PROPIONATE\SALMETEROL XINAFOATE
  25. CROMOLYN SODIUM [Concomitant]
     Active Substance: CROMOLYN SODIUM
  26. CALTRATE WITH VITAMIN D [Concomitant]
     Active Substance: CALCIUM CARBONATE\CHOLECALCIFEROL
  27. IPRATROPIUM BROMIDE [Concomitant]
     Active Substance: IPRATROPIUM BROMIDE
  28. DIPHENHYDRAMINE HYDROCHLORIDE [Concomitant]
     Active Substance: DIPHENHYDRAMINE HYDROCHLORIDE
  29. DIPHENHYDRAMINE [Concomitant]
     Active Substance: DIPHENHYDRAMINE
  30. VITAMINS [Concomitant]
     Active Substance: VITAMINS
  31. ALBUTEROL SULFATE [Concomitant]
     Active Substance: ALBUTEROL SULFATE
  32. VITAMIN B COMPLEX [Concomitant]
     Active Substance: CYANOCOBALAMIN\DEXPANTHENOL\NIACINAMIDE\PYRIDOXINE HYDROCHLORIDE\RIBOFLAVIN 5^-PHOSPHATE SODIUM\THIA
     Dosage: UNK UNK, QD

REACTIONS (14)
  - Adrenal insufficiency [Unknown]
  - Viral infection [Unknown]
  - Skin hypertrophy [Unknown]
  - Sinusitis [Unknown]
  - Dermatitis contact [Unknown]
  - COVID-19 [Unknown]
  - Fungal infection [Unknown]
  - Candida infection [Unknown]
  - Nasopharyngitis [Unknown]
  - Product dose omission issue [Unknown]
  - Upper respiratory tract infection [Unknown]
  - Rhinitis [Unknown]
  - Injection site erythema [Unknown]
  - Injection site pruritus [Unknown]
